APPROVED DRUG PRODUCT: NUPRIN
Active Ingredient: IBUPROFEN
Strength: 200MG
Dosage Form/Route: TABLET;ORAL
Application: N019012 | Product #001
Applicant: KENVUE BRANDS LLC
Approved: May 18, 1984 | RLD: No | RS: No | Type: DISCN